FAERS Safety Report 5701891-4 (Version None)
Quarter: 2008Q2

REPORT INFORMATION
  Report Type: 
  Country: None (occurrence: None)
  Receive Date: 20080411
  Receipt Date: 20080410
  Transmission Date: 20081010
  Serious: Yes (Life-Threatening, Hospitalization, Other)
  Sender: FDA-Public Use
  Company Number: US-BRISTOL-MYERS SQUIBB COMPANY-14126130

PATIENT
  Age: 65 Year
  Sex: Female
  Weight: 72 kg

DRUGS (9)
  1. COUMADIN [Suspect]
     Indication: ATRIAL FIBRILLATION
     Route: 048
     Dates: start: 20070917
  2. BLINDED: ONDANSETRON [Suspect]
     Indication: PROPHYLAXIS OF NAUSEA AND VOMITING
     Dosage: ADMINISTERED ONCE
     Route: 042
     Dates: start: 20080205, end: 20080205
  3. BLINDED: PLACEBO [Suspect]
     Indication: PROPHYLAXIS OF NAUSEA AND VOMITING
     Route: 048
     Dates: start: 20080205, end: 20080205
  4. LOVENOX [Suspect]
     Indication: ANTICOAGULANT THERAPY
     Route: 058
     Dates: start: 20080207
  5. METOPROLOL TARTRATE [Concomitant]
     Dates: start: 20070901
  6. IBUPROFEN [Concomitant]
     Dates: start: 20080207
  7. SENNA [Concomitant]
     Dates: start: 20080207
  8. PERCOCET [Concomitant]
     Dates: start: 20080207
  9. MILK OF MAGNESIA [Concomitant]

REACTIONS (3)
  - ABDOMINAL PAIN [None]
  - DYSPNOEA [None]
  - INTRA-ABDOMINAL HAEMORRHAGE [None]
